FAERS Safety Report 18508081 (Version 2)
Quarter: 2022Q1

REPORT INFORMATION
  Report Type: Spontaneous
  Country: US (occurrence: US)
  Receive Date: 20201116
  Receipt Date: 20220321
  Transmission Date: 20220424
  Serious: No
  Sender: FDA-Public Use
  Company Number: US-PFIZER INC-2020450141

PATIENT
  Age: 66 Year
  Sex: Female

DRUGS (2)
  1. IBRANCE [Suspect]
     Active Substance: PALBOCICLIB
     Dosage: 125 MG
  2. IBRANCE [Suspect]
     Active Substance: PALBOCICLIB
     Dosage: 100 MG

REACTIONS (4)
  - Oral mucosal blistering [Unknown]
  - Bone disorder [Unknown]
  - Fall [Unknown]
  - Sciatica [Unknown]

NARRATIVE: CASE EVENT DATE: 20220101
